FAERS Safety Report 10432733 (Version 2)
Quarter: 2014Q3

REPORT INFORMATION
  Report Type: Spontaneous
  Country: CA (occurrence: CA)
  Receive Date: 20140905
  Receipt Date: 20140905
  Transmission Date: 20150326
  Serious: Yes (Other)
  Sender: FDA-Public Use
  Company Number: CA-MYLANLABS-2014M1002227

PATIENT
  Age: 27 Year
  Sex: Female

DRUGS (3)
  1. PRENATAL VITAMINS                  /07499601/ [Concomitant]
     Dosage: UNK
  2. CLARUS [Suspect]
     Active Substance: ISOTRETINOIN
     Dosage: 50 MG, UNK
     Dates: start: 201401, end: 201406
  3. VITAMIN B12 [Concomitant]
     Active Substance: CYANOCOBALAMIN
     Indication: VITAMIN B12 DEFICIENCY
     Dosage: UNK

REACTIONS (1)
  - Maternal exposure before pregnancy [Not Recovered/Not Resolved]

NARRATIVE: CASE EVENT DATE: 201408
